FAERS Safety Report 4339750-4 (Version None)
Quarter: 2004Q2

REPORT INFORMATION
  Report Type: 
  Country: None (occurrence: None)
  Receive Date: 20040415
  Receipt Date: 20040415
  Transmission Date: 20050107
  Serious: Yes (Other)
  Sender: FDA-Public Use
  Company Number: None

PATIENT
  Sex: Female
  Weight: 13.6079 kg

DRUGS (1)
  1. LINDANE [Suspect]
     Indication: LICE INFESTATION
     Dates: start: 19980601, end: 19980601

REACTIONS (2)
  - CHEMICAL BURN OF SKIN [None]
  - DERMATITIS EXFOLIATIVE [None]
